FAERS Safety Report 19386314 (Version 1)
Quarter: 2021Q2

REPORT INFORMATION
  Report Type: Spontaneous
  Country: US (occurrence: US)
  Receive Date: 20210606
  Receipt Date: 20210606
  Transmission Date: 20210717
  Serious: Yes (Other)
  Sender: FDA-Public Use
  Company Number: None

PATIENT
  Age: 60 Year
  Sex: Female
  Weight: 69.75 kg

DRUGS (9)
  1. PROAIR HFA [Concomitant]
     Active Substance: ALBUTEROL SULFATE
  2. PROBIOTICS [Concomitant]
     Active Substance: PROBIOTICS NOS
  3. FLUNISOLIDE. [Concomitant]
     Active Substance: FLUNISOLIDE
  4. TIZANIDINE. [Concomitant]
     Active Substance: TIZANIDINE
  5. MULTIVITAMIN [Concomitant]
     Active Substance: VITAMINS
  6. TEMAZEPAM. [Suspect]
     Active Substance: TEMAZEPAM
     Indication: INSOMNIA
     Dosage: ?          QUANTITY:1 CAPSULE(S);?
     Route: 048
  7. CLONAZEPAM. [Concomitant]
     Active Substance: CLONAZEPAM
  8. VITAMIN C [Concomitant]
     Active Substance: ASCORBIC ACID
  9. VITAMIN E [Concomitant]
     Active Substance: .ALPHA.-TOCOPHEROL

REACTIONS (5)
  - Product quality issue [None]
  - Drug ineffective [None]
  - Palpitations [None]
  - Chest pain [None]
  - Initial insomnia [None]

NARRATIVE: CASE EVENT DATE: 20210520
